FAERS Safety Report 23294142 (Version 4)
Quarter: 2024Q1

REPORT INFORMATION
  Report Type: Spontaneous
  Country: US (occurrence: US)
  Receive Date: 20231213
  Receipt Date: 20240311
  Transmission Date: 20240410
  Serious: No
  Sender: FDA-Public Use
  Company Number: US-PFIZER INC-202300440160

PATIENT
  Age: 21 Year
  Sex: Female

DRUGS (2)
  1. EUCRISA [Suspect]
     Active Substance: CRISABOROLE
     Indication: Dermatitis atopic
     Dosage: UNK
     Dates: start: 20190329, end: 20190715
  2. CIBINQO [Concomitant]
     Active Substance: ABROCITINIB
     Dosage: 100 MG, DAILY

REACTIONS (11)
  - Drug ineffective [Unknown]
  - Pruritus [Unknown]
  - Skin burning sensation [Unknown]
  - Oral discomfort [Unknown]
  - Skin fissures [Unknown]
  - Condition aggravated [Not Recovered/Not Resolved]
  - Erythema [Unknown]
  - Eczema [Unknown]
  - Oral pruritus [Unknown]
  - Oral discomfort [Unknown]
  - Chapped lips [Unknown]
